FAERS Safety Report 6938880-8 (Version None)
Quarter: 2010Q3

REPORT INFORMATION
  Report Type: 
  Country: None (occurrence: None)
  Receive Date: 20100824
  Receipt Date: 20100820
  Transmission Date: 20110219
  Serious: Yes (Hospitalization)
  Sender: FDA-Public Use
  Company Number: A0861514A

PATIENT
  Sex: Female

DRUGS (2)
  1. TYKERB [Suspect]
     Dosage: 1250MG PER DAY
     Route: 048
     Dates: start: 20100421, end: 20100101
  2. XELODA [Concomitant]
     Route: 065

REACTIONS (3)
  - BLISTER [None]
  - BREAST CANCER METASTATIC [None]
  - INFECTION [None]
